FAERS Safety Report 5035364-1 (Version None)
Quarter: 2006Q2

REPORT INFORMATION
  Report Type: 
  Country: None (occurrence: None)
  Receive Date: 20060524
  Receipt Date: 20060307
  Transmission Date: 20061013
  Serious: Yes (Other)
  Sender: FDA-Public Use
  Company Number: US-JNJFOC-20051201203

PATIENT
  Age: 65 Year
  Sex: Male
  Weight: 61.6892 kg

DRUGS (2)
  1. SPORANOX [Suspect]
     Indication: COCCIDIOIDOMYCOSIS
     Dosage: 400 MG, 1 IN 1 DAY, ORAL
     Route: 048
  2. VITAMIN (VITAMINS NOS) [Concomitant]

REACTIONS (1)
  - COCCIDIOIDOMYCOSIS [None]
